FAERS Safety Report 7353432-6 (Version None)
Quarter: 2011Q1

REPORT INFORMATION
  Report Type: 
  Country: None (occurrence: None)
  Receive Date: 20110315
  Receipt Date: 20110308
  Transmission Date: 20110831
  Serious: Yes (Other)
  Sender: FDA-Public Use
  Company Number: US-SANOFI-AVENTIS-2011SA011113

PATIENT
  Age: 64 Year
  Sex: Female
  Weight: 88.45 kg

DRUGS (22)
  1. LISINOPRIL [Concomitant]
     Indication: BLOOD PRESSURE
  2. CYMBALTA [Concomitant]
     Indication: DEPRESSION
  3. OPTICLICK [Suspect]
  4. NORVASC [Concomitant]
     Indication: BLOOD PRESSURE
  5. LIPITOR [Concomitant]
  6. TYLENOL PM [Suspect]
     Indication: INSOMNIA
     Dosage: ONE TABLET AT NIGHT
  7. MULTI-VITAMINS [Concomitant]
     Dosage: 1 TABLET IN THE MORNING
  8. SOMA [Concomitant]
     Dosage: AT NIGHT
  9. ASPIRIN [Concomitant]
  10. ALPRAZOLAM [Concomitant]
     Indication: ANXIETY
  11. GLUCOPHAGE [Concomitant]
  12. COREG [Concomitant]
  13. TEMAZEPAM [Concomitant]
     Indication: INSOMNIA
     Dosage: 1 TABLET IN THE EVENING
  14. NEXIUM [Concomitant]
  15. VITAMIN D [Concomitant]
     Dosage: 1 TABLET IN THE MORNING
  16. LORTAB [Concomitant]
     Indication: BACK PAIN
     Dosage: EVERY 6 HOURS
  17. LANTUS [Suspect]
     Indication: DIABETES MELLITUS
     Dosage: DOSE:35 UNIT(S)
     Route: 058
     Dates: start: 20080101
  18. LUNESTA [Concomitant]
     Indication: INSOMNIA
  19. CARBIDOPA AND LEVODOPA [Concomitant]
     Indication: PARKINSON'S DISEASE
     Dosage: 50 TO 200 MG
  20. GABAPENTIN [Concomitant]
     Dosage: 300 MG IN THE MORNING AND 600 MG IN THE EVENING
  21. ARICEPT [Concomitant]
     Indication: DEMENTIA
  22. LEVOXYL [Concomitant]

REACTIONS (2)
  - DEMENTIA ALZHEIMER'S TYPE [None]
  - MEMORY IMPAIRMENT [None]
